FAERS Safety Report 12708794 (Version 1)
Quarter: 2016Q3

REPORT INFORMATION
  Report Type: Spontaneous
  Country: US (occurrence: US)
  Receive Date: 20160901
  Receipt Date: 20160901
  Transmission Date: 20161109
  Serious: Yes (Hospitalization, Other)
  Sender: FDA-Public Use
  Company Number: US-BAXTER-2016BAX044696

PATIENT
  Age: 18 Year
  Sex: Male

DRUGS (16)
  1. DAUNOMYCIN [Suspect]
     Active Substance: DAUNORUBICIN
     Indication: B PRECURSOR TYPE ACUTE LEUKAEMIA
     Dosage: INDUCTION OF AALL1131
     Route: 065
     Dates: end: 201501
  2. TOCILIZUMAB [Suspect]
     Active Substance: TOCILIZUMAB
     Indication: CYTOKINE RELEASE SYNDROME
     Dosage: ANTI-IL6R, 2 DOSES
     Route: 065
  3. MITOXANTRONE [Suspect]
     Active Substance: MITOXANTRONE HYDROCHLORIDE
     Indication: SALVAGE THERAPY
     Dosage: UK-ALLR3
     Route: 065
  4. DEXAMETHASONE. [Suspect]
     Active Substance: DEXAMETHASONE
     Indication: SALVAGE THERAPY
     Dosage: UK-ALLR3
     Route: 065
  5. FLUDARABINE [Suspect]
     Active Substance: FLUDARABINE PHOSPHATE
     Indication: CHEMOTHERAPY
     Route: 065
     Dates: start: 20160506, end: 20160511
  6. CYCLOPHOSPHAMIDE FOR INJECTION, USP [Suspect]
     Active Substance: CYCLOPHOSPHAMIDE
     Indication: B PRECURSOR TYPE ACUTE LEUKAEMIA
     Dosage: A 3 DAY COURSE
     Route: 065
  7. ETOPOSIDE. [Suspect]
     Active Substance: ETOPOSIDE
     Indication: B PRECURSOR TYPE ACUTE LEUKAEMIA
     Dosage: A 3 DAY COURSE
     Route: 065
  8. MILRINONE [Suspect]
     Active Substance: MILRINONE
     Indication: CARDIAC DISORDER
     Dosage: GTT
     Route: 065
  9. LEVOFLOXACIN. [Suspect]
     Active Substance: LEVOFLOXACIN
     Indication: PRODUCT USED FOR UNKNOWN INDICATION
     Route: 065
  10. VINCRISTINE [Suspect]
     Active Substance: VINCRISTINE
     Indication: SALVAGE THERAPY
     Dosage: UK-ALLR3
     Route: 065
     Dates: end: 201501
  11. CYCLOPHOSPHAMIDE FOR INJECTION, USP [Suspect]
     Active Substance: CYCLOPHOSPHAMIDE
     Indication: CHEMOTHERAPY
     Route: 065
     Dates: start: 20160506, end: 20160511
  12. ALLOPURINOL. [Suspect]
     Active Substance: ALLOPURINOL
     Indication: TUMOUR LYSIS SYNDROME
     Route: 065
  13. PEG/L-ASPARAGINASE [Suspect]
     Active Substance: PEGASPARGASE
     Indication: SALVAGE THERAPY
     Dosage: UK-ALLR3
     Route: 065
  14. BORTEZOMIB [Suspect]
     Active Substance: BORTEZOMIB
     Indication: SALVAGE THERAPY
     Route: 065
  15. VINCRISTINE [Suspect]
     Active Substance: VINCRISTINE
     Indication: B PRECURSOR TYPE ACUTE LEUKAEMIA
     Dosage: INDUCTION OF AALL1131
     Route: 065
     Dates: end: 201501
  16. METHOTREXATE. [Suspect]
     Active Substance: METHOTREXATE
     Indication: B PRECURSOR TYPE ACUTE LEUKAEMIA
     Dosage: INDUCTION OF AALL1131, INTERIM HIGH MAINTENANCE DOSE
     Route: 065
     Dates: end: 201501

REACTIONS (9)
  - Neutrophil count abnormal [Unknown]
  - Cytokine release syndrome [Unknown]
  - Cardiac disorder [Unknown]
  - Tumour lysis syndrome [Unknown]
  - Haemarthrosis [Unknown]
  - Skin infection [Unknown]
  - Electrocardiogram QT prolonged [Recovered/Resolved]
  - Fusarium infection [Unknown]
  - Epstein-Barr viraemia [Recovered/Resolved]
